FAERS Safety Report 4789522-1 (Version None)
Quarter: 2005Q4

REPORT INFORMATION
  Report Type: 
  Country: None (occurrence: None)
  Receive Date: 20051005
  Receipt Date: 20051005
  Transmission Date: 20060501
  Serious: Yes (Life-Threatening, Hospitalization)
  Sender: FDA-Public Use
  Company Number: None

PATIENT
  Age: 65 Year
  Sex: Male

DRUGS (9)
  1. ASPIRIN [Suspect]
     Indication: THROMBOSIS PROPHYLAXIS
     Dosage: 325 MG PO QAM/QHS
     Route: 048
  2. CLOPIDIGREL [Suspect]
     Indication: THROMBOSIS PROPHYLAXIS
     Dosage: 75 MG QAM/QHS
     Route: 048
  3. ESCITALOPRAM OXALATE [Concomitant]
  4. SIMVASTATIN [Concomitant]
  5. AMLODIPINE [Concomitant]
  6. IRBESARTAN [Concomitant]
  7. DONEPIZIL [Concomitant]
  8. FOLIC ACID [Concomitant]
  9. TRAZODONE [Concomitant]

REACTIONS (2)
  - HAEMATOCHEZIA [None]
  - HAEMOGLOBIN DECREASED [None]
